FAERS Safety Report 16828026 (Version 1)
Quarter: 2019Q3

REPORT INFORMATION
  Report Type: Spontaneous
  Country: US (occurrence: US)
  Receive Date: 20190919
  Receipt Date: 20190919
  Transmission Date: 20191005
  Serious: Yes (Hospitalization)
  Sender: FDA-Public Use
  Company Number: US-OTSUKA-2019_032332

PATIENT
  Age: 4 Decade
  Sex: Male

DRUGS (2)
  1. REXULTI [Suspect]
     Active Substance: BREXPIPRAZOLE
     Dosage: 1 MG, UNK
     Route: 065
     Dates: start: 201904
  2. REXULTI [Suspect]
     Active Substance: BREXPIPRAZOLE
     Indication: SCHIZOAFFECTIVE DISORDER BIPOLAR TYPE
     Dosage: 2 MG, UNK
     Route: 065
     Dates: start: 201909

REACTIONS (7)
  - Unevaluable event [Unknown]
  - Flat affect [Unknown]
  - Neurological symptom [Unknown]
  - Decreased appetite [Unknown]
  - Drug effective for unapproved indication [Unknown]
  - Confusional state [Unknown]
  - Hypotension [Unknown]

NARRATIVE: CASE EVENT DATE: 2019
